FAERS Safety Report 18566370 (Version 1)
Quarter: 2020Q4

REPORT INFORMATION
  Report Type: Spontaneous
  Country: FR (occurrence: FR)
  Receive Date: 20201201
  Receipt Date: 20201201
  Transmission Date: 20210114
  Serious: Yes (Life-Threatening, Hospitalization)
  Sender: FDA-Public Use
  Company Number: FR-MYLANLABS-2020M1097453

PATIENT
  Age: 72 Year
  Sex: Female
  Weight: 93 kg

DRUGS (6)
  1. CIMETIDINE [Suspect]
     Active Substance: CIMETIDINE
     Indication: PREMEDICATION
     Dosage: UNK
     Route: 048
     Dates: start: 20201016, end: 20201016
  2. SUFENTANIL [Suspect]
     Active Substance: SUFENTANIL
     Indication: GENERAL ANAESTHESIA
     Dosage: 10 MICROGRAM, TOTAL
     Route: 042
     Dates: start: 20201016, end: 20201016
  3. PROPOFOL. [Suspect]
     Active Substance: PROPOFOL
     Indication: GENERAL ANAESTHESIA
     Dosage: 120 MILLIGRAM, TOTAL
     Route: 042
     Dates: start: 20201016, end: 20201016
  4. KETAMINE [Suspect]
     Active Substance: KETAMINE
     Indication: GENERAL ANAESTHESIA
     Dosage: 20 MILLIGRAM, TOTAL
     Route: 042
     Dates: start: 20201016, end: 20201016
  5. CEFAZOLIN [Suspect]
     Active Substance: CEFAZOLIN
     Indication: ANTIBIOTIC PROPHYLAXIS
     Dosage: 2 GRAM, TOTAL
     Route: 042
     Dates: start: 20201016, end: 20201016
  6. ESMERON [Suspect]
     Active Substance: ROCURONIUM BROMIDE
     Indication: GENERAL ANAESTHESIA
     Dosage: 100 MILLIGRAM, TOTAL
     Route: 042
     Dates: start: 20201016, end: 20201016

REACTIONS (1)
  - Anaphylactic shock [Recovered/Resolved]

NARRATIVE: CASE EVENT DATE: 20201016
